FAERS Safety Report 15882173 (Version 1)
Quarter: 2019Q1

REPORT INFORMATION
  Report Type: Spontaneous
  Country: US (occurrence: US)
  Receive Date: 20190128
  Receipt Date: 20190128
  Transmission Date: 20190417
  Serious: No
  Sender: FDA-Public Use
  Company Number: US-DSJP-DSU-2017-141587

PATIENT

DRUGS (1)
  1. BENICAR [Suspect]
     Active Substance: OLMESARTAN MEDOXOMIL
     Indication: HYPERTENSION
     Dosage: 40 MG, QD
     Route: 048
     Dates: start: 20140227, end: 20161130

REACTIONS (5)
  - Weight decreased [Recovered/Resolved]
  - Irritable bowel syndrome [Recovering/Resolving]
  - Gastrointestinal inflammation [Recovering/Resolving]
  - Colitis [Unknown]
  - Rectal haemorrhage [Unknown]

NARRATIVE: CASE EVENT DATE: 20141112
